FAERS Safety Report 17110453 (Version 1)
Quarter: 2019Q4

REPORT INFORMATION
  Report Type: Spontaneous
  Country: AR (occurrence: AR)
  Receive Date: 20191204
  Receipt Date: 20191204
  Transmission Date: 20200122
  Serious: Yes (Other)
  Sender: FDA-Public Use
  Company Number: AR-PFIZER INC-2019524276

PATIENT
  Age: 61 Year
  Sex: Female

DRUGS (2)
  1. PALBOCICLIB [Suspect]
     Active Substance: PALBOCICLIB
     Indication: BREAST CANCER METASTATIC
     Dosage: UNK UNK, CYCLIC, SCHEME 3X1
     Dates: start: 20171123
  2. FULVESTRANT. [Concomitant]
     Active Substance: FULVESTRANT

REACTIONS (4)
  - Dyspnoea [Recovered/Resolved]
  - Glaucoma [Unknown]
  - Blindness [Unknown]
  - Blood pressure decreased [Recovered/Resolved]
